FAERS Safety Report 7303007-X (Version None)
Quarter: 2011Q1

REPORT INFORMATION
  Report Type: 
  Country: None (occurrence: None)
  Receive Date: 20110221
  Receipt Date: 20110209
  Transmission Date: 20110831
  Serious: Yes (Hospitalization)
  Sender: FDA-Public Use
  Company Number: US-BIOGENIDEC-2010BI024058

PATIENT
  Age: 37 Year
  Sex: Female

DRUGS (4)
  1. ASPIRIN [Concomitant]
  2. TYSABRI [Suspect]
     Indication: MULTIPLE SCLEROSIS
     Route: 042
     Dates: start: 20090911, end: 20100722
  3. ATENOLOL [Concomitant]
  4. LISINOPRIL [Concomitant]

REACTIONS (1)
  - ANGINA UNSTABLE [None]
